FAERS Safety Report 5473622-7 (Version None)
Quarter: 2007Q3

REPORT INFORMATION
  Report Type: 
  Country: None (occurrence: None)
  Receive Date: 20070831
  Receipt Date: 20070413
  Transmission Date: 20080115
  Serious: No
  Sender: FDA-Public Use
  Company Number: 239936

PATIENT
  Sex: Male

DRUGS (5)
  1. LUCENTIS [Suspect]
     Indication: OCULAR VASCULAR DISORDER
     Dosage: 1/MONTH,INTRAVITREAL
     Dates: start: 20060401
  2. DILTIAZEM HCL [Concomitant]
  3. CAPITROL (CHLOROXIE) [Concomitant]
  4. SPIROLONE (SPIRONOLACTONE) [Concomitant]
  5. RED YEAST RICE (RED YEAST) [Concomitant]

REACTIONS (1)
  - VITREOUS FLOATERS [None]
